FAERS Safety Report 11030481 (Version 1)
Quarter: 2015Q2

REPORT INFORMATION
  Report Type: Spontaneous
  Country: GB (occurrence: GB)
  Receive Date: 20150415
  Receipt Date: 20150415
  Transmission Date: 20150821
  Serious: Yes (Other)
  Sender: FDA-Public Use
  Company Number: GB-WATSON-2015-07691

PATIENT
  Age: 42 Year
  Sex: Male

DRUGS (1)
  1. FENTANYL. [Suspect]
     Active Substance: FENTANYL
     Indication: PRODUCT USED FOR UNKNOWN INDICATION
     Dosage: 50 ?G/HR ONCE EVERY 3 DAYS
     Route: 062

REACTIONS (4)
  - Alopecia [Unknown]
  - Renal disorder [Unknown]
  - Fatigue [Unknown]
  - Leukaemia [Unknown]
